FAERS Safety Report 16682653 (Version 1)
Quarter: 2019Q3

REPORT INFORMATION
  Report Type: Spontaneous
  Country: US (occurrence: US)
  Receive Date: 20190808
  Receipt Date: 20190808
  Transmission Date: 20191004
  Serious: No
  Sender: FDA-Public Use
  Company Number: US-BAYER-2019-142991

PATIENT

DRUGS (1)
  1. REGORAFENIB. [Suspect]
     Active Substance: REGORAFENIB
     Indication: GLIOBLASTOMA MULTIFORME
     Dosage: UNK

REACTIONS (3)
  - Off label use [None]
  - Affect lability [None]
  - Product use in unapproved indication [None]
